FAERS Safety Report 9235167 (Version 2)
Quarter: 2013Q2

REPORT INFORMATION
  Report Type: Spontaneous
  Country: TW (occurrence: TW)
  Receive Date: 20130417
  Receipt Date: 20130417
  Transmission Date: 20140414
  Serious: Yes (Death)
  Sender: FDA-Public Use
  Company Number: TW-RANBAXY-2005US-01272

PATIENT
  Age: 57 Year
  Sex: Female

DRUGS (2)
  1. CEPHALEXIN [Suspect]
     Indication: ANTIBIOTIC PROPHYLAXIS
     Dosage: UNK
     Route: 042
  2. CEFAZOLIN [Suspect]
     Indication: ANTIBIOTIC PROPHYLAXIS
     Dosage: UNK
     Route: 042

REACTIONS (10)
  - Anaphylactic reaction [Fatal]
  - Drug hypersensitivity [None]
  - Nausea [None]
  - Chest discomfort [None]
  - Muscle twitching [None]
  - Gaze palsy [None]
  - Urinary incontinence [None]
  - Blood pressure immeasurable [None]
  - Mydriasis [None]
  - Cyanosis [None]
